FAERS Safety Report 10761793 (Version 1)
Quarter: 2015Q1

REPORT INFORMATION
  Report Type: Spontaneous
  Country: US (occurrence: US)
  Receive Date: 20150204
  Receipt Date: 20150204
  Transmission Date: 20150721
  Serious: Yes (Other)
  Sender: FDA-Public Use
  Company Number: US-ELI_LILLY_AND_COMPANY-US201501009393

PATIENT
  Sex: Female

DRUGS (1)
  1. DULOXETINE HYDROCHLORIDE. [Suspect]
     Active Substance: DULOXETINE HYDROCHLORIDE
     Indication: PRODUCT USED FOR UNKNOWN INDICATION
     Dosage: UNK, UNKNOWN
     Route: 065
     Dates: start: 201411

REACTIONS (9)
  - Hearing impaired [Unknown]
  - Tremor [Not Recovered/Not Resolved]
  - Asthenia [Unknown]
  - Fibromyalgia [Unknown]
  - Upper limb fracture [Unknown]
  - Suicidal ideation [Unknown]
  - Violence-related symptom [Unknown]
  - Pruritus [Unknown]
  - Head discomfort [Unknown]
